FAERS Safety Report 22147967 (Version 1)
Quarter: 2023Q1

REPORT INFORMATION
  Report Type: Spontaneous
  Country: BR (occurrence: BR)
  Receive Date: 20230328
  Receipt Date: 20230328
  Transmission Date: 20230417
  Serious: Yes (Death, Other)
  Sender: FDA-Public Use
  Company Number: BR-DSJP-DSE-2023-111564

PATIENT
  Age: 5 Decade
  Sex: Male

DRUGS (1)
  1. ENHERTU [Suspect]
     Active Substance: FAM-TRASTUZUMAB DERUXTECAN-NXKI
     Indication: Colorectal cancer metastatic
     Dosage: 5.4 MG (THIRD LINE OF TREATMENT)
     Route: 065

REACTIONS (4)
  - Oncologic complication [Fatal]
  - Myelosuppression [Unknown]
  - Asthenia [Unknown]
  - Product use in unapproved indication [Unknown]
